FAERS Safety Report 13238450 (Version 3)
Quarter: 2017Q2

REPORT INFORMATION
  Report Type: Spontaneous
  Country: CA (occurrence: CA)
  Receive Date: 20170216
  Receipt Date: 20170629
  Transmission Date: 20170830
  Serious: Yes (Other)
  Sender: FDA-Public Use
  Company Number: CA-CONCORDIA PHARMACEUTICALS INC.-GSH201702-001111

PATIENT
  Age: 56 Year
  Sex: Female

DRUGS (21)
  1. ENBREL [Concomitant]
     Active Substance: ETANERCEPT
  2. RITUXAN [Concomitant]
     Active Substance: RITUXIMAB
  3. INDAPAMIDE. [Concomitant]
     Active Substance: INDAPAMIDE
  4. PANTOLOC [Concomitant]
     Active Substance: PANTOPRAZOLE SODIUM
     Dates: start: 201612
  5. COVERSYL [Concomitant]
     Active Substance: PERINDOPRIL
  6. CIMZIA [Concomitant]
     Active Substance: CERTOLIZUMAB PEGOL
  7. SULFASALAZINE. [Suspect]
     Active Substance: SULFASALAZINE
     Indication: RHEUMATOID ARTHRITIS
     Route: 065
  8. PLAQUENIL [Suspect]
     Active Substance: HYDROXYCHLOROQUINE SULFATE
     Indication: RHEUMATOID ARTHRITIS
     Route: 048
  9. ACTEMRA [Suspect]
     Active Substance: TOCILIZUMAB
     Indication: RHEUMATOID ARTHRITIS
     Route: 065
  10. METHOTREXATE SODIUM. [Suspect]
     Active Substance: METHOTREXATE SODIUM
     Indication: RHEUMATOID ARTHRITIS
     Route: 058
  11. PREDNISONE. [Suspect]
     Active Substance: PREDNISONE
     Indication: PRODUCT USED FOR UNKNOWN INDICATION
     Route: 065
     Dates: start: 201610
  12. ARAVA [Concomitant]
     Active Substance: LEFLUNOMIDE
  13. TYLENOL [Concomitant]
     Active Substance: ACETAMINOPHEN
  14. HUMIRA [Concomitant]
     Active Substance: ADALIMUMAB
  15. NAPROSYN [Concomitant]
     Active Substance: NAPROXEN
  16. CALCIUM [Concomitant]
     Active Substance: CALCIUM
  17. VITAMIN D [Concomitant]
     Active Substance: CHOLECALCIFEROL
  18. PREDNISONE. [Suspect]
     Active Substance: PREDNISONE
     Route: 065
  19. ORENCIA [Concomitant]
     Active Substance: ABATACEPT
  20. ACETAMINOPHEN. [Concomitant]
     Active Substance: ACETAMINOPHEN
  21. FOLIC ACID. [Concomitant]
     Active Substance: FOLIC ACID
     Dates: start: 201609

REACTIONS (6)
  - Laceration [Unknown]
  - Diverticulitis [Unknown]
  - Drug ineffective [Unknown]
  - Wound [Unknown]
  - Skin atrophy [Not Recovered/Not Resolved]
  - Arthropathy [Unknown]
